FAERS Safety Report 4499058-3 (Version None)
Quarter: 2004Q4

REPORT INFORMATION
  Report Type: 
  Country: None (occurrence: None)
  Receive Date: 20041110
  Receipt Date: 20041110
  Transmission Date: 20050328
  Serious: Yes (Life-Threatening, Hospitalization)
  Sender: FDA-Public Use
  Company Number: None

PATIENT
  Age: 57 Year
  Sex: Male
  Weight: 92.98 kg

DRUGS (2)
  1. NATRECOR [Suspect]
     Indication: CARDIAC FAILURE CONGESTIVE
     Dosage: 180 MCG ONCE IV
     Route: 042
     Dates: start: 20040919, end: 20040919
  2. NATRECOR [Suspect]
     Indication: CARDIAC FAILURE CONGESTIVE
     Dosage: 54 MCG/HR INFUSION IV
     Route: 042
     Dates: start: 20040921, end: 20040930

REACTIONS (10)
  - ABDOMINAL DISTENSION [None]
  - BLOOD PRESSURE SYSTOLIC DECREASED [None]
  - DIALYSIS [None]
  - EJECTION FRACTION DECREASED [None]
  - HYPOTENSION [None]
  - HYPOXIA [None]
  - INTERNATIONAL NORMALISED RATIO ABNORMAL [None]
  - INTESTINAL ISCHAEMIA [None]
  - LOW CARDIAC OUTPUT SYNDROME [None]
  - RENAL FAILURE [None]
